APPROVED DRUG PRODUCT: MIACALCIN
Active Ingredient: CALCITONIN SALMON
Strength: 200 IU/ML
Dosage Form/Route: INJECTABLE;INJECTION
Application: N017808 | Product #002 | TE Code: AP
Applicant: MYLAN IRELAND LTD
Approved: Mar 29, 1991 | RLD: Yes | RS: Yes | Type: RX